FAERS Safety Report 5720660-2 (Version None)
Quarter: 2008Q2

REPORT INFORMATION
  Report Type: 
  Country: None (occurrence: None)
  Receive Date: 20080429
  Receipt Date: 20080417
  Transmission Date: 20081010
  Serious: Yes (Hospitalization, Other)
  Sender: FDA-Public Use
  Company Number: GB-JNJFOC-20080405444

PATIENT
  Sex: Female
  Weight: 47 kg

DRUGS (7)
  1. REMICADE [Suspect]
     Indication: RHEUMATOID ARTHRITIS
     Route: 042
  2. UNSPECIFIED BIOLOGIC AGENT [Concomitant]
  3. METHOTREXATE [Concomitant]
  4. FOSAMAX [Concomitant]
  5. GABAPENTIN [Concomitant]
  6. HORMONE REPLACEMENT THERAPY [Concomitant]
  7. PARACETAMOL [Concomitant]

REACTIONS (2)
  - BLADDER CANCER [None]
  - DRUG INEFFECTIVE [None]
